FAERS Safety Report 8568211 (Version 4)
Quarter: 2012Q4

REPORT INFORMATION
  Report Type: 
  Country: US (occurrence: US)
  Receive Date: 20120518
  Receipt Date: 20120920
  Transmission Date: 20130627
  Serious: Yes (Hospitalization)
  Sender: FDA-Public Use
  Company Number: US-ELI_LILLY_AND_COMPANY-US201205004501

PATIENT
  Age: 71 Year
  Sex: Male

DRUGS (17)
  1. FORTEO [Suspect]
     Indication: OSTEOPOROSIS
     Dosage: 20 ug, qd
     Route: 058
     Dates: start: 20120503
  2. FORTEO [Suspect]
     Dosage: 20 ug, qd
     Route: 058
  3. ATIVAN [Concomitant]
     Indication: SLEEP APNOEA SYNDROME
  4. ZOLOFT [Concomitant]
     Indication: DEPRESSION
     Dosage: 100 mg, each evening
     Route: 048
  5. PROVIGIL [Concomitant]
     Indication: SLEEP APNOEA SYNDROME
     Dosage: 1 DF, bid
     Route: 048
     Dates: end: 20120522
  6. CALCIUM CARBONATE [Concomitant]
     Dosage: 900 mg, qd
     Route: 048
  7. FUROSEMIDE [Concomitant]
     Dosage: 40 mg, qd
     Route: 048
  8. FUROSEMIDE [Concomitant]
     Dosage: 80 mg, qd
     Route: 048
  9. GLUCOSAMINE + CHONDROITIN [Concomitant]
     Dosage: 1 DF, bid
     Route: 048
  10. ASPIRIN [Concomitant]
     Dosage: 81 mg, qd
  11. ICAPS LUTEIN + ZEAXANTHIN FORMULA [Concomitant]
     Dosage: 1 DF, monthly (1/M)
     Route: 048
  12. LORAZEPAM [Concomitant]
     Indication: ANXIETY
     Dosage: 2 DF, prn
  13. BYETTA [Concomitant]
  14. PRAMIPEXOLE [Concomitant]
     Dosage: 0.5 mg, tid
     Route: 048
  15. MULTIVITAMIN [Concomitant]
     Dosage: 1 DF, qd
  16. CARBIDOPA W/LEVODOPA [Concomitant]
     Dosage: 100 mg, UNK
     Route: 048
  17. SPIRONOLACTONE [Concomitant]
     Dosage: 1 DF, each morning
     Route: 048

REACTIONS (5)
  - Right ventricular failure [Unknown]
  - Sick sinus syndrome [Unknown]
  - Diastolic dysfunction [Unknown]
  - Muscular weakness [Unknown]
  - Dyspnoea [Unknown]
